FAERS Safety Report 5922524-8 (Version None)
Quarter: 2008Q4

REPORT INFORMATION
  Report Type: 
  Country: None (occurrence: None)
  Receive Date: 20081017
  Receipt Date: 20081008
  Transmission Date: 20090506
  Serious: Yes (Other)
  Sender: FDA-Public Use
  Company Number: PHHY2008DE19021

PATIENT
  Sex: Male
  Weight: 81 kg

DRUGS (8)
  1. RASILEZ [Suspect]
     Indication: BLOOD PRESSURE INADEQUATELY CONTROLLED
     Dosage: 150 MG, UNK
     Dates: start: 20080129, end: 20080613
  2. RASILEZ [Suspect]
     Dosage: 300 MG, UNK
     Dates: start: 20080614, end: 20080726
  3. TORSEMIDE [Concomitant]
     Indication: POLYURIA
     Dosage: 50 MG/DAY
     Dates: start: 20070101, end: 20080701
  4. TORSEMIDE [Concomitant]
     Dosage: 100 MG/DAY
     Dates: start: 20080701
  5. CARMEN [Concomitant]
     Indication: HYPERTENSION
     Dosage: UNK
     Dates: start: 20070101
  6. NEBILET [Concomitant]
     Indication: HYPERTENSION
     Dosage: UNK
     Dates: start: 20070101
  7. INSULIN [Concomitant]
  8. MOXONIDINE [Concomitant]

REACTIONS (8)
  - BLOOD CREATININE INCREASED [None]
  - BLOOD PRESSURE INCREASED [None]
  - BLOOD UREA INCREASED [None]
  - DIALYSIS [None]
  - FLUID RETENTION [None]
  - HAEMOGLOBIN DECREASED [None]
  - RENAL FAILURE [None]
  - WEIGHT INCREASED [None]
